FAERS Safety Report 9314724 (Version 3)
Quarter: 2013Q3

REPORT INFORMATION
  Report Type: Spontaneous
  Country: DE (occurrence: DE)
  Receive Date: 20130529
  Receipt Date: 20130919
  Transmission Date: 20140515
  Serious: Yes (Hospitalization, Other)
  Sender: FDA-Public Use
  Company Number: PHHY2013DE053058

PATIENT
  Sex: Female

DRUGS (12)
  1. GLIVEC [Suspect]
     Indication: CHRONIC MYELOID LEUKAEMIA
     Dosage: 1 DF, PER DAY
     Dates: start: 20130412, end: 20130419
  2. VIGANTOLETTEN [Concomitant]
     Dosage: 1 DF, DAILY
  3. CANDESARTAN W/HYDROCHLOROTHIAZIDE [Concomitant]
     Dosage: 1 DF, (8MG/12.5MG) DAILY
  4. VOLTARENE//DICLOFENAC SODIUM [Concomitant]
     Dosage: UNK UKN, UNK
  5. ELECTROLYTES NOS [Concomitant]
     Dosage: UNK UKN, UNK
  6. URBASON                                 /GFR/ [Concomitant]
     Dosage: 40 MG/100CC
     Dates: start: 20130420
  7. PERFALGAN [Concomitant]
     Dosage: 1 BOTTLE
  8. TOBRADEX [Concomitant]
     Dosage: 2 GCC, BID
     Dates: start: 20130421
  9. PANTOPRAZOLE [Concomitant]
     Dosage: 40 MG, IN MORNING
  10. DELTACORTENE [Concomitant]
     Dosage: 50 MG, TWICE A DAY FOR 3 DAYS
  11. DELTACORTENE [Concomitant]
     Dosage: 25 MG, TWICE A DAY FOR 3 DAYS
  12. DELTACORTENE [Concomitant]
     Dosage: 25 MG, PER DAY FOR 2 DAYS

REACTIONS (21)
  - Respiratory disorder [Recovering/Resolving]
  - Sleep disorder [Recovering/Resolving]
  - Eyelid injury [Recovering/Resolving]
  - Hypersensitivity [Recovered/Resolved]
  - Skin discolouration [Recovering/Resolving]
  - Rash scarlatiniform [Recovering/Resolving]
  - Rash [Recovering/Resolving]
  - Rash pustular [Recovering/Resolving]
  - Blister [Recovering/Resolving]
  - Dizziness [Recovering/Resolving]
  - Lip blister [Recovering/Resolving]
  - Gingival blister [Recovering/Resolving]
  - Muscle spasms [Recovering/Resolving]
  - Skin exfoliation [Recovering/Resolving]
  - Gait disturbance [Recovering/Resolving]
  - Arthralgia [Recovering/Resolving]
  - Asthenia [Recovering/Resolving]
  - Vertigo [Recovering/Resolving]
  - Anxiety [Recovering/Resolving]
  - Heart rate increased [Unknown]
  - White blood cell count increased [Recovered/Resolved]
